FAERS Safety Report 5780394-5 (Version None)
Quarter: 2008Q2

REPORT INFORMATION
  Report Type: 
  Country: None (occurrence: None)
  Receive Date: 20080620
  Receipt Date: 20080613
  Transmission Date: 20081010
  Serious: No
  Sender: FDA-Public Use
  Company Number: US-JNJFOC-20080604078

PATIENT
  Age: 30 Year
  Sex: Female
  Weight: 87.09 kg

DRUGS (3)
  1. INVEGA [Suspect]
     Indication: BIPOLAR II DISORDER
     Route: 048
  2. KLONOPIN [Concomitant]
     Indication: ANXIETY
     Route: 048
  3. AMBIEN [Concomitant]
     Indication: SLEEP DISORDER THERAPY
     Route: 048

REACTIONS (4)
  - DYSPNOEA [None]
  - INCREASED APPETITE [None]
  - MUSCLE SPASMS [None]
  - WEIGHT INCREASED [None]
